FAERS Safety Report 8925047 (Version 1)
Quarter: 2012Q4

REPORT INFORMATION
  Report Type: 
  Country: US (occurrence: US)
  Receive Date: 20121126
  Receipt Date: 20121126
  Transmission Date: 20130627
  Serious: Yes (Hospitalization)
  Sender: FDA-Public Use
  Company Number: US-BAYER-2012-121276

PATIENT
  Age: 25 Year
  Sex: Female
  Weight: 66.94 kg

DRUGS (2)
  1. YAZ [Suspect]
     Route: 048
  2. XANAX [Concomitant]

REACTIONS (1)
  - Pulmonary embolism [Recovered/Resolved]
